FAERS Safety Report 7359364-1 (Version None)
Quarter: 2011Q1

REPORT INFORMATION
  Report Type: 
  Country: None (occurrence: None)
  Receive Date: 20110317
  Receipt Date: 20090911
  Transmission Date: 20110831
  Serious: No
  Sender: FDA-Public Use
  Company Number: US-PFIZER INC-2009249088

PATIENT
  Age: 65 Year
  Sex: Female
  Weight: 48.98 kg

DRUGS (3)
  1. BIAXIN [Concomitant]
     Dosage: UNK
     Route: 048
  2. PREDNISONE [Concomitant]
     Dosage: UNK
  3. AMLODIPINE BESYLATE [Suspect]
     Indication: HYPERTENSION
     Dosage: 5 MG, 1X/DAY
     Route: 048

REACTIONS (2)
  - RASH [None]
  - PRURITUS [None]
